FAERS Safety Report 11867422 (Version 1)
Quarter: 2015Q4

REPORT INFORMATION
  Report Type: Report from Study
  Country: BR (occurrence: BR)
  Receive Date: 20151224
  Receipt Date: 20151224
  Transmission Date: 20160305
  Serious: Yes (Other)
  Sender: FDA-Public Use
  Company Number: PHHY2015BR156833

PATIENT
  Sex: Female
  Weight: 52 kg

DRUGS (1)
  1. ACLASTA [Suspect]
     Active Substance: ZOLEDRONIC ACID
     Indication: OSTEOPOROSIS
     Dosage: 5 MG, Q12MO
     Route: 042
     Dates: start: 20141125

REACTIONS (13)
  - Rhinorrhoea [Not Recovered/Not Resolved]
  - Nervousness [Unknown]
  - Feeding disorder [Unknown]
  - Weight decreased [Not Recovered/Not Resolved]
  - Glucose tolerance impaired [Unknown]
  - Cough [Not Recovered/Not Resolved]
  - Visual impairment [Unknown]
  - Tachycardia [Not Recovered/Not Resolved]
  - Dysphonia [Unknown]
  - Influenza [Recovered/Resolved]
  - Macular degeneration [Unknown]
  - Blood pressure abnormal [Unknown]
  - Malaise [Unknown]

NARRATIVE: CASE EVENT DATE: 2014
